FAERS Safety Report 10498186 (Version 1)
Quarter: 2014Q4

REPORT INFORMATION
  Report Type: Spontaneous
  Country: US (occurrence: None)
  Receive Date: 20141003
  Receipt Date: 20141003
  Transmission Date: 20150528
  Serious: Yes (Hospitalization)
  Sender: FDA-Public Use
  Company Number: None

PATIENT
  Age: 60 Year
  Sex: Male
  Weight: 67.27 kg

DRUGS (7)
  1. GEMCITABINE HYDROCHLORIDE. [Suspect]
     Active Substance: GEMCITABINE HYDROCHLORIDE
     Dosage: COURSE OF GEMCITABINE LAST ADMINSTERED WAS 8/19/2014.  PATIENT DID NOT RECEIVE CYCLE 4 DAY 1 TREATMENT DUE TO THE ADVERSE EVENT.
     Dates: end: 20140819
  2. CARVEDILOL. [Concomitant]
     Active Substance: CARVEDILOL
  3. COUMADIN [Concomitant]
     Active Substance: WARFARIN SODIUM
  4. LUNESTA [Concomitant]
     Active Substance: ESZOPICLONE
  5. NIACIN. [Concomitant]
     Active Substance: NIACIN
  6. LISINOPRIL. [Concomitant]
     Active Substance: LISINOPRIL
  7. METFORMIN [Concomitant]
     Active Substance: METFORMIN HYDROCHLORIDE

REACTIONS (10)
  - Haematochezia [None]
  - Pulmonary congestion [None]
  - Dyspnoea [None]
  - Haematemesis [None]
  - Fatigue [None]
  - Anaemia [None]
  - Abdominal pain [None]
  - Cardiac failure congestive [None]
  - Gastric ulcer [None]
  - Syncope [None]

NARRATIVE: CASE EVENT DATE: 20140924
